FAERS Safety Report 9445226 (Version 1)
Quarter: 2013Q3

REPORT INFORMATION
  Report Type: Spontaneous
  Country: JP (occurrence: None)
  Receive Date: 20130802
  Receipt Date: 20130802
  Transmission Date: 20140515
  Serious: Yes (Hospitalization, Other)
  Sender: FDA-Public Use
  Company Number: ADR-2013-01281

PATIENT
  Age: 58 Year
  Sex: Male

DRUGS (1)
  1. GABALON INTRATHECAL [Suspect]

REACTIONS (2)
  - Pneumonia [None]
  - Haemoptysis [None]
